FAERS Safety Report 5550057-X (Version None)
Quarter: 2007Q4

REPORT INFORMATION
  Report Type: 
  Country: None (occurrence: None)
  Receive Date: 20071212
  Receipt Date: 20071207
  Transmission Date: 20080405
  Serious: Yes (Other)
  Sender: FDA-Public Use
  Company Number: JP-BAYER-200711017BYL

PATIENT
  Age: 66 Year
  Sex: Female

DRUGS (2)
  1. ADALAT [Suspect]
     Indication: HYPERTENSION
     Dosage: TOTAL DAILY DOSE: 40 MG  UNIT DOSE: 20 MG
     Route: 048
     Dates: end: 20071024
  2. MICARDIS [Concomitant]
     Dosage: TOTAL DAILY DOSE: 20 MG
     Route: 048

REACTIONS (1)
  - ATRIOVENTRICULAR BLOCK [None]
